FAERS Safety Report 19313066 (Version 1)
Quarter: 2021Q2

REPORT INFORMATION
  Report Type: Spontaneous
  Country: DE (occurrence: DE)
  Receive Date: 20210527
  Receipt Date: 20210527
  Transmission Date: 20210717
  Serious: Yes (Hospitalization, Other)
  Sender: FDA-Public Use
  Company Number: DE-EMD SERONO-E2B_90083621

PATIENT
  Age: 39 Year
  Sex: Female

DRUGS (4)
  1. ELONVA [Suspect]
     Active Substance: CORIFOLLITROPIN ALFA
     Indication: ASSISTED REPRODUCTIVE TECHNOLOGY
     Dosage: 3. ZT
  2. PERGOVERIS [Suspect]
     Active Substance: FOLLITROPIN\LUTROPIN ALFA
     Indication: ASSISTED REPRODUCTIVE TECHNOLOGY
     Dosage: 7.TO 10 ZT
  3. OVITRELLE [Suspect]
     Active Substance: CHORIOGONADOTROPIN ALFA
     Indication: ASSISTED REPRODUCTIVE TECHNOLOGY
     Dosage: 11 ZT
  4. ORGALUTRAN [Suspect]
     Active Substance: GANIRELIX ACETATE
     Indication: ASSISTED REPRODUCTIVE TECHNOLOGY
     Dosage: 7.TO 9. ZT

REACTIONS (3)
  - Intra-abdominal fluid collection [Recovered/Resolved]
  - Ovarian cyst ruptured [Recovered/Resolved]
  - Ovarian hyperstimulation syndrome [Recovered/Resolved]

NARRATIVE: CASE EVENT DATE: 20210422
